FAERS Safety Report 12728923 (Version 1)
Quarter: 2016Q3

REPORT INFORMATION
  Report Type: Spontaneous
  Country: US (occurrence: US)
  Receive Date: 20160909
  Receipt Date: 20160909
  Transmission Date: 20161109
  Serious: No
  Sender: FDA-Public Use
  Company Number: US-BIOMARINAP-US-2016-111015

PATIENT
  Sex: Female

DRUGS (1)
  1. KUVAN [Suspect]
     Active Substance: SAPROPTERIN DIHYDROCHLORIDE
     Indication: PHENYLKETONURIA
     Dosage: 20 MG/KG, UNK
     Route: 065
     Dates: start: 20161018

REACTIONS (5)
  - Frequent bowel movements [Unknown]
  - Flatulence [Unknown]
  - Hyperphagia [Unknown]
  - Urticaria [Unknown]
  - Decreased appetite [Unknown]
